FAERS Safety Report 4696887-8 (Version None)
Quarter: 2005Q2

REPORT INFORMATION
  Report Type: 
  Country: None (occurrence: None)
  Receive Date: 20050620
  Receipt Date: 20050610
  Transmission Date: 20051028
  Serious: Yes (Hospitalization)
  Sender: FDA-Public Use
  Company Number: 2005-06-0683

PATIENT
  Age: 69 Year
  Sex: Male
  Weight: 51 kg

DRUGS (4)
  1. PEG-INTRON [Suspect]
     Indication: HEPATITIS C
     Dosage: 80 MCG QW SUBCUTANEOUS
     Route: 058
     Dates: start: 20050302, end: 20050316
  2. PEG-INTRON [Suspect]
     Indication: HEPATITIS C
     Dosage: 40 MCG QW SUBCUTANEOUS
     Route: 058
     Dates: start: 20050323, end: 20050323
  3. PEG-INTRON [Suspect]
     Indication: HEPATITIS C
     Dosage: 30 MCG QW SUBCUTANEOUS
     Route: 058
     Dates: start: 20050330, end: 20050330
  4. REBETOL [Suspect]
     Indication: HEPATITIS C
     Dosage: 600 MG ORAL
     Route: 048
     Dates: start: 20050302, end: 20050412

REACTIONS (1)
  - LYMPHOMA [None]
